FAERS Safety Report 6223059-8 (Version None)
Quarter: 2009Q2

REPORT INFORMATION
  Report Type: 
  Country: None (occurrence: None)
  Receive Date: 20090611
  Receipt Date: 20090529
  Transmission Date: 20091009
  Serious: Yes (Hospitalization)
  Sender: FDA-Public Use
  Company Number: US-ALEXION-A200900437

PATIENT
  Sex: Male

DRUGS (10)
  1. SOLIRIS [Suspect]
     Indication: PAROXYSMAL NOCTURNAL HAEMOGLOBINURIA
     Dosage: 600 MG, QW X4
     Route: 042
     Dates: start: 20070621, end: 20070712
  2. SOLIRIS [Suspect]
     Dosage: 900 MG, Q2W
     Route: 042
     Dates: start: 20070719
  3. ATENOLOL [Concomitant]
     Dosage: UNK
     Dates: end: 20090501
  4. ATENOLOL [Concomitant]
     Dosage: UNK
     Dates: start: 20090511
  5. ASPIRIN [Concomitant]
  6. COUMADIN [Concomitant]
  7. FERROUS SULFATE TAB [Concomitant]
  8. FOLIC ACID [Concomitant]
  9. OMEPRAZOLE [Concomitant]
     Dosage: UNK
     Route: 048
  10. ZESTRIL [Concomitant]
     Dosage: UNK
     Route: 048

REACTIONS (1)
  - CHEST PAIN [None]
